FAERS Safety Report 7389145-4 (Version None)
Quarter: 2011Q1

REPORT INFORMATION
  Report Type: 
  Country: None (occurrence: None)
  Receive Date: 20110329
  Receipt Date: 20110329
  Transmission Date: 20110831
  Serious: Yes (Life-Threatening, Hospitalization)
  Sender: FDA-Public Use
  Company Number: None

PATIENT
  Sex: Female
  Weight: 122.4712 kg

DRUGS (3)
  1. DARVOCET [Suspect]
     Indication: FIBROMYALGIA
     Dosage: TAKE WHEN NEEDED 500 MG 4-6 TIMES WEEK
     Dates: start: 20081215, end: 20101230
  2. DARVOCET [Suspect]
     Indication: MIGRAINE
     Dosage: TAKE WHEN NEEDED 500 MG 4-6 TIMES WEEK
     Dates: start: 20081215, end: 20101230
  3. DARVOCET [Suspect]
     Indication: OSTEOARTHRITIS
     Dosage: TAKE WHEN NEEDED 500 MG 4-6 TIMES WEEK
     Dates: start: 20081215, end: 20101230

REACTIONS (4)
  - HEART RATE IRREGULAR [None]
  - CHEST PAIN [None]
  - SYNCOPE [None]
  - MALAISE [None]
